FAERS Safety Report 6700677-1 (Version None)
Quarter: 2010Q2

REPORT INFORMATION
  Report Type: 
  Country: None (occurrence: None)
  Receive Date: 20100428
  Receipt Date: 20100421
  Transmission Date: 20101027
  Serious: Yes (Death)
  Sender: FDA-Public Use
  Company Number: PHHY2010DE26241

PATIENT
  Age: 60 Year
  Sex: Male
  Weight: 55 kg

DRUGS (12)
  1. SANDOSTATIN [Suspect]
     Dosage: 3X100 MICROGRAM DAILY
     Route: 058
     Dates: start: 20100303, end: 20100310
  2. KETAMINE [Suspect]
     Dosage: 10-200 MG DAILY
     Route: 042
     Dates: start: 20100224, end: 20100225
  3. KETAMINE [Suspect]
     Dosage: 10-200 MG DAILY
     Route: 042
     Dates: start: 20100302, end: 20100311
  4. CATAPRESAN [Suspect]
     Dosage: 0.3-1.7 MG DAILY
     Route: 042
     Dates: start: 20100228, end: 20100315
  5. FUROSEMIDE ^RATIOPHARM^ [Suspect]
     Dosage: 40-400 MG DAILY
     Route: 042
     Dates: start: 20100224
  6. FUROSEMIDE ^RATIOPHARM^ [Suspect]
     Dosage: 40-400 MG DAILY
     Route: 042
     Dates: end: 20100312
  7. PIPERACILLIN AND TAZOBACTAM [Suspect]
     Dosage: 2 DF, DAILY
     Route: 042
     Dates: start: 20100225, end: 20100311
  8. HALOPERIDOL ^GRY^ [Suspect]
     Dosage: 3X 0.5 MG, DAILY
     Route: 042
     Dates: start: 20100303, end: 20100306
  9. VESDIL [Suspect]
     Dosage: 2.5-10 MG DAILY
     Route: 048
     Dates: start: 20100301, end: 20100304
  10. VESDIL [Suspect]
     Dosage: 2.5-10 MG DAILY
     Route: 048
     Dates: start: 20100307, end: 20100308
  11. PARTUSISTEN [Suspect]
     Dosage: NEARLY 1 MG, DAILY
     Route: 042
     Dates: start: 20100303, end: 20100315
  12. XENETIX [Suspect]
     Dosage: 100 ML, ONCE/SINGLE
     Route: 042
     Dates: start: 20100305, end: 20100305

REACTIONS (2)
  - AGRANULOCYTOSIS [None]
  - BACTERIAL INFECTION [None]
